FAERS Safety Report 15279916 (Version 1)
Quarter: 2018Q3

REPORT INFORMATION
  Report Type: Report from Study
  Country: DE (occurrence: DE)
  Receive Date: 20180815
  Receipt Date: 20180815
  Transmission Date: 20181010
  Serious: Yes (Other)
  Sender: FDA-Public Use
  Company Number: DE-TEVA-2018-DE-940488

PATIENT
  Age: 38 Year
  Sex: Female
  Weight: 65 kg

DRUGS (35)
  1. RISPERIDON [Concomitant]
     Active Substance: RISPERIDONE
     Route: 065
     Dates: start: 20140401, end: 20140408
  2. VIVINOX [Concomitant]
     Route: 065
     Dates: start: 20130909
  3. AZITHROMYCIN ANHYDROUS. [Concomitant]
     Active Substance: AZITHROMYCIN ANHYDROUS
     Route: 065
     Dates: start: 20130527, end: 20130529
  4. AMPHO MORONAL [Concomitant]
     Active Substance: AMPHOTERICIN B
     Route: 065
     Dates: start: 20130610
  5. AZITHROMYCIN ANHYDROUS. [Concomitant]
     Active Substance: AZITHROMYCIN ANHYDROUS
     Route: 065
     Dates: start: 20141030, end: 20141104
  6. BETAGALEN [Concomitant]
     Route: 065
     Dates: start: 20130426
  7. MEMANTINA [Concomitant]
     Active Substance: MEMANTINE HYDROCHLORIDE
     Route: 065
     Dates: start: 20130627
  8. L?THYROXIN [Concomitant]
     Active Substance: LEVOTHYROXINE SODIUM
     Route: 065
     Dates: start: 20130722, end: 20130819
  9. TETRACAINE HYDROCHLORIDE. [Concomitant]
     Active Substance: TETRACAINE HYDROCHLORIDE
     Route: 065
     Dates: start: 20130627
  10. FUCICORT [Concomitant]
     Active Substance: BETAMETHASONE VALERATE\FUSIDIC ACID
     Route: 065
     Dates: start: 20130715
  11. BEPANTHEN CREAM (GERMANY) [Concomitant]
     Active Substance: DEXPANTHENOL
     Route: 065
     Dates: start: 20130603
  12. UNACID PD [Concomitant]
     Active Substance: SULTAMICILLIN TOSYLATE
     Route: 048
     Dates: start: 20140324, end: 20140328
  13. AZITHROMYCIN ANHYDROUS. [Concomitant]
     Active Substance: AZITHROMYCIN ANHYDROUS
     Route: 065
     Dates: start: 20130627, end: 20130629
  14. NEO?ANGIN (GERMANY) [Concomitant]
     Route: 065
     Dates: start: 20131118
  15. AZITHROMYCIN ANHYDROUS. [Concomitant]
     Active Substance: AZITHROMYCIN ANHYDROUS
     Route: 065
     Dates: start: 20130712, end: 20130714
  16. L?THYROXIN [Concomitant]
     Active Substance: LEVOTHYROXINE SODIUM
     Route: 065
     Dates: start: 20131202
  17. METAMIZOL [Concomitant]
     Active Substance: METAMIZOLE SODIUM
     Route: 065
     Dates: start: 20130627
  18. MIRTAZAPIN [Concomitant]
     Active Substance: MIRTAZAPINE
     Dosage: IN THE EVENING
     Route: 065
     Dates: start: 20130402
  19. DEXAMYTREX [Concomitant]
     Active Substance: DEXAMETHASONE SODIUM PHOSPHATE\GENTAMICIN SULFATE
     Route: 065
     Dates: start: 20130712
  20. L?THYROXIN [Concomitant]
     Active Substance: LEVOTHYROXINE SODIUM
     Route: 065
     Dates: start: 20130820, end: 20131202
  21. AZITHROMYCIN ANHYDROUS. [Concomitant]
     Active Substance: AZITHROMYCIN ANHYDROUS
     Route: 065
     Dates: start: 20140408, end: 20140410
  22. CITALOPRAM [Concomitant]
     Active Substance: CITALOPRAM HYDROBROMIDE
     Dosage: 1?0?0
     Route: 065
     Dates: start: 20130320, end: 20130327
  23. BUDESONIDE EASYHALER [Concomitant]
     Active Substance: BUDESONIDE
     Route: 065
     Dates: start: 20140331
  24. AMPHO MORONAL [Concomitant]
     Active Substance: AMPHOTERICIN B
     Route: 065
     Dates: start: 20131230
  25. CEFUROXIM [Concomitant]
     Active Substance: CEFUROXIME
     Route: 065
     Dates: start: 20130603, end: 20130609
  26. AZITHROMYCIN ANHYDROUS. [Concomitant]
     Active Substance: AZITHROMYCIN ANHYDROUS
     Route: 065
     Dates: start: 20130503, end: 20130505
  27. LOTRIDERM [Concomitant]
     Active Substance: BETAMETHASONE DIPROPIONATE\CLOTRIMAZOLE
     Route: 065
     Dates: start: 20130610
  28. LOPERAMID [Concomitant]
     Active Substance: LOPERAMIDE
     Route: 065
     Dates: start: 20130603, end: 20130603
  29. RIBAVIRIN. [Suspect]
     Active Substance: RIBAVIRIN
     Indication: CHRONIC HEPATITIS C
     Dosage: 1200 MILLIGRAM DAILY;
     Route: 048
     Dates: start: 20130421, end: 20140317
  30. PEGINTERFERON ALFA?2A. [Suspect]
     Active Substance: PEGINTERFERON ALFA-2A
     Dosage: 180 MCG
     Route: 058
     Dates: start: 20131118, end: 20140317
  31. PEGINTERFERON ALFA?2A. [Suspect]
     Active Substance: PEGINTERFERON ALFA-2A
     Indication: CHRONIC HEPATITIS C
     Dosage: 180 MCG
     Route: 058
     Dates: start: 20130415, end: 20131110
  32. PEGINTERFERON ALFA?2A. [Suspect]
     Active Substance: PEGINTERFERON ALFA-2A
     Dosage: 135 MCG
     Route: 058
     Dates: start: 20131111, end: 20131117
  33. IBUPROFEN. [Concomitant]
     Active Substance: IBUPROFEN
     Route: 065
  34. L?THYROXIN [Concomitant]
     Active Substance: LEVOTHYROXINE SODIUM
     Route: 065
     Dates: start: 20130617
  35. OMEPRAZOL [Concomitant]
     Active Substance: OMEPRAZOLE
     Route: 065
     Dates: start: 20130503

REACTIONS (16)
  - Gastroenteritis [Recovered/Resolved]
  - Chest pain [Not Recovered/Not Resolved]
  - Dry skin [Not Recovered/Not Resolved]
  - Skin fissures [Not Recovered/Not Resolved]
  - Dizziness [Not Recovered/Not Resolved]
  - Gastritis [Not Recovered/Not Resolved]
  - Lymphadenopathy [Recovered/Resolved]
  - Decreased appetite [Not Recovered/Not Resolved]
  - Visual impairment [Not Recovered/Not Resolved]
  - Irritability [Not Recovered/Not Resolved]
  - Eczema [Not Recovered/Not Resolved]
  - Ear discomfort [Recovered/Resolved]
  - Angina pectoris [Not Recovered/Not Resolved]
  - Respiratory tract infection [Not Recovered/Not Resolved]
  - Night sweats [Not Recovered/Not Resolved]
  - Cyanosis [Not Recovered/Not Resolved]

NARRATIVE: CASE EVENT DATE: 20130419
